FAERS Safety Report 21059255 (Version 1)
Quarter: 2022Q3

REPORT INFORMATION
  Report Type: Spontaneous
  Country: CN (occurrence: CN)
  Receive Date: 20220708
  Receipt Date: 20220708
  Transmission Date: 20221027
  Serious: Yes (Other)
  Sender: FDA-Public Use
  Company Number: CN-BAYER-2022A091625

PATIENT
  Age: 81 Year
  Sex: Female
  Weight: 35 kg

DRUGS (3)
  1. AVELOX [Suspect]
     Active Substance: MOXIFLOXACIN HYDROCHLORIDE
     Indication: Bronchitis
     Dosage: 0.4 G, QD
     Route: 041
     Dates: start: 20220501, end: 20220501
  2. COMPOUND OSSOTIDE [OSSOTIDE] [Concomitant]
     Indication: Humerus fracture
     Dosage: 120 MG, QD
     Route: 041
     Dates: start: 20220427, end: 20220503
  3. CEFTIZOXIME SODIUM [Concomitant]
     Active Substance: CEFTIZOXIME SODIUM
     Indication: Infection prophylaxis
     Dosage: 2 G, BID
     Route: 041
     Dates: start: 20220427, end: 20220503

REACTIONS (3)
  - Altered state of consciousness [Recovered/Resolved]
  - Delirium [Recovered/Resolved]
  - Disorganised speech [Recovered/Resolved]

NARRATIVE: CASE EVENT DATE: 20220501
